FAERS Safety Report 4386932-1 (Version None)
Quarter: 2004Q2

REPORT INFORMATION
  Report Type: 
  Country: None (occurrence: None)
  Receive Date: 20040630
  Receipt Date: 20040617
  Transmission Date: 20050107
  Serious: Yes (Hospitalization)
  Sender: FDA-Public Use
  Company Number: US-AMGEN-US079452

PATIENT
  Sex: Male
  Weight: 97 kg

DRUGS (10)
  1. SENSIPAR [Suspect]
     Indication: HYPERPARATHYROIDISM SECONDARY
     Route: 048
     Dates: start: 20040527
  2. FOLIC ACID [Concomitant]
     Route: 048
     Dates: start: 20010115
  3. ASPIRIN [Concomitant]
     Route: 048
     Dates: start: 20011109
  4. PREVACID [Concomitant]
     Route: 048
     Dates: start: 20020501
  5. LISINOPRIL [Concomitant]
     Route: 047
  6. METOPROLOL TARTRATE [Concomitant]
     Route: 048
  7. RENAGEL [Concomitant]
     Route: 048
  8. TUMS [Concomitant]
     Route: 048
  9. SENOKOT [Concomitant]
  10. BENADRYL [Concomitant]

REACTIONS (4)
  - ABDOMINAL ABSCESS [None]
  - DIZZINESS [None]
  - NAUSEA [None]
  - RETCHING [None]
